FAERS Safety Report 8345825-5 (Version None)
Quarter: 2012Q2

REPORT INFORMATION
  Report Type: 
  Country: None (occurrence: None)
  Receive Date: 20120509
  Receipt Date: 20120501
  Transmission Date: 20120825
  Serious: Yes (Hospitalization)
  Sender: FDA-Public Use
  Company Number: US-BIOGENIDEC-2010BI030701

PATIENT
  Age: 64 Year
  Sex: Female

DRUGS (2)
  1. TYSABRI [Suspect]
     Indication: MULTIPLE SCLEROSIS
     Route: 042
     Dates: start: 20070628, end: 20100601
  2. TYSABRI [Suspect]
     Route: 042
     Dates: start: 20100101

REACTIONS (13)
  - PNEUMONIA [None]
  - MULTIPLE SCLEROSIS [None]
  - RESPIRATORY DISORDER [None]
  - ABDOMINAL HERNIA OBSTRUCTIVE [None]
  - VEIN DISORDER [None]
  - SEPSIS [None]
  - GAIT DISTURBANCE [None]
  - LIP SWELLING [None]
  - POST PROCEDURAL COMPLICATION [None]
  - INTESTINAL OBSTRUCTION [None]
  - IMMUNE SYSTEM DISORDER [None]
  - COGNITIVE DISORDER [None]
  - CONDITION AGGRAVATED [None]
